FAERS Safety Report 9951866 (Version 1)
Quarter: 2014Q1

REPORT INFORMATION
  Report Type: Spontaneous
  Country: PR (occurrence: PR)
  Receive Date: 20140304
  Receipt Date: 20140304
  Transmission Date: 20141002
  Serious: No
  Sender: FDA-Public Use
  Company Number: PR-ABBVIE-13P-131-1073806-00

PATIENT
  Sex: Female
  Weight: 59.02 kg

DRUGS (5)
  1. HUMIRA [Suspect]
     Indication: RHEUMATOID ARTHRITIS
     Dosage: EVERY TWO WEEKS
     Dates: start: 201207, end: 20130319
  2. SKELAXIN [Concomitant]
     Indication: INTERVERTEBRAL DISC PROTRUSION
     Route: 048
  3. ZEGERID [Concomitant]
     Indication: ABDOMINAL HERNIA
     Route: 048
  4. ZEGERID [Concomitant]
     Indication: ULCER
  5. ULTRACET [Concomitant]
     Indication: PAIN
     Route: 048

REACTIONS (3)
  - Nasopharyngitis [Recovering/Resolving]
  - Injection site erythema [Recovered/Resolved with Sequelae]
  - Injection site swelling [Recovered/Resolved with Sequelae]
